FAERS Safety Report 16304458 (Version 5)
Quarter: 2020Q3

REPORT INFORMATION
  Report Type: Spontaneous
  Country: US (occurrence: US)
  Receive Date: 20190513
  Receipt Date: 20200724
  Transmission Date: 20201102
  Serious: No
  Sender: FDA-Public Use
  Company Number: US-PFIZER INC-2018532897

PATIENT
  Age: 66 Year
  Sex: Female
  Weight: 57 kg

DRUGS (5)
  1. TYLENOL [Concomitant]
     Active Substance: ACETAMINOPHEN
     Indication: PAIN
     Dosage: UNK
  2. LYRICA [Suspect]
     Active Substance: PREGABALIN
     Indication: FIBROMYALGIA
     Dosage: 100 MG, 3X/DAY (AT 6 AM, NOON AND 6 PM))
     Route: 048
     Dates: start: 20190312
  3. LYRICA [Suspect]
     Active Substance: PREGABALIN
     Indication: NEURITIS
  4. LYRICA [Suspect]
     Active Substance: PREGABALIN
     Indication: NEURALGIA
     Dosage: 100 MG, 3X/DAY
     Route: 048
     Dates: start: 2018
  5. LYRICA [Suspect]
     Active Substance: PREGABALIN
     Indication: PAIN
     Dosage: 100 MG, 3X/DAY
     Route: 048
     Dates: start: 20191125

REACTIONS (4)
  - Lacrimation increased [Unknown]
  - Hyperhidrosis [Unknown]
  - Vision blurred [Unknown]
  - Spinal pain [Unknown]
